FAERS Safety Report 11916431 (Version 4)
Quarter: 2016Q2

REPORT INFORMATION
  Report Type: Spontaneous
  Country: US (occurrence: US)
  Receive Date: 20160114
  Receipt Date: 20160502
  Transmission Date: 20160815
  Serious: Yes (Death, Hospitalization, Other)
  Sender: FDA-Public Use
  Company Number: US-PFIZER INC-2015450854

PATIENT
  Age: 70 Year
  Sex: Male
  Weight: 90.72 kg

DRUGS (30)
  1. GEMZAR [Suspect]
     Active Substance: GEMCITABINE HYDROCHLORIDE
     Indication: BLADDER CANCER
     Dosage: UNK
     Dates: start: 201512
  2. DELTASONE [Concomitant]
     Active Substance: PREDNISONE
     Dosage: 10 MG, DAILY
     Route: 048
  3. TEMOVATE [Concomitant]
     Active Substance: CLOBETASOL PROPIONATE
     Dosage: 0.05 %, 2X/DAY
     Route: 061
  4. FOLVITE [Concomitant]
     Active Substance: FOLIC ACID
     Dosage: 1 MG, DAILY
     Route: 048
     Dates: start: 201507
  5. BACTRIM DS [Concomitant]
     Active Substance: SULFAMETHOXAZOLE\TRIMETHOPRIM
     Dosage: SULFAMETHOXAZOLE 800 MG/ TRIMETHOPRIM  160 MG, 2X/DAY ON MONDAYS AND THURSDAYS
     Route: 048
     Dates: start: 201201
  6. REVATIO [Suspect]
     Active Substance: SILDENAFIL CITRATE
     Indication: PULMONARY ARTERIAL HYPERTENSION
     Dosage: 40 MG, 3X/DAY
     Route: 048
     Dates: start: 201203, end: 20160407
  7. K-DUR [Concomitant]
     Active Substance: POTASSIUM CHLORIDE
     Dosage: 60 MEQ, DAILY
  8. ASPIRIN (E.C.) [Concomitant]
     Active Substance: ASPIRIN
     Dosage: 81 MG, DAILY
     Route: 048
     Dates: start: 2001
  9. PRILOSEC [Concomitant]
     Active Substance: OMEPRAZOLE MAGNESIUM
     Dosage: 20 MG, 2X/DAY
     Route: 048
     Dates: start: 201201
  10. KLOR-CON M20 [Concomitant]
     Active Substance: POTASSIUM CHLORIDE
     Dosage: 40 MEQ, DAILY
     Dates: start: 201508
  11. KLOR-CON M20 [Concomitant]
     Active Substance: POTASSIUM CHLORIDE
     Dosage: 60 MEQ, DAILY
  12. ALBUTEROL. [Concomitant]
     Active Substance: ALBUTEROL
     Dosage: 2 DF, AS NEEDED 108 (90 BASE) MCG/ACT (INHALE 2 PUFFS INTO THE LUNGS EVERY 6 HOURS))
     Route: 055
     Dates: start: 201303
  13. DEMADEX [Concomitant]
     Active Substance: TORSEMIDE
     Dosage: 40 MG, 2X/DAY
     Route: 048
     Dates: start: 2012
  14. AMBIEN [Concomitant]
     Active Substance: ZOLPIDEM TARTRATE
     Indication: SLEEP DISORDER
     Dosage: 5 MG, AS NEEDED (NIGHTLY)
     Route: 048
     Dates: start: 201212
  15. LIPITOR [Concomitant]
     Active Substance: ATORVASTATIN CALCIUM
     Dosage: 80 MG, DAILY
     Route: 048
     Dates: start: 2000
  16. DELTASONE [Concomitant]
     Active Substance: PREDNISONE
     Dosage: 20 MG, DAILY (AS DIRECTED)
     Route: 048
     Dates: start: 201201
  17. DELTASONE [Concomitant]
     Active Substance: PREDNISONE
     Dosage: 5 MG, 1X/DAY (TAKES HALF TABLET (10 MG) IN THE MORNING)
     Route: 048
  18. OPSUMIT [Concomitant]
     Active Substance: MACITENTAN
     Indication: PULMONARY HYPERTENSION
     Dosage: 10 MG, 1X/DAY
     Route: 048
     Dates: start: 201508
  19. ADVAIR HFA [Concomitant]
     Active Substance: FLUTICASONE PROPIONATE\SALMETEROL XINAFOATE
     Dosage: 2 DF, 2X/DAY (INHALE 2 PUFFS INTO THE LUNGS 2 TIMES DAILY)
     Route: 055
  20. REVATIO [Suspect]
     Active Substance: SILDENAFIL CITRATE
     Dosage: 20 MG, 3X/DAY
     Dates: start: 201203
  21. IRON FERROUS SULFATE [Concomitant]
     Dosage: 325 MG, DAILY (WITH BREAKFAST)
     Route: 048
     Dates: start: 201507
  22. LUMIGAN [Concomitant]
     Active Substance: BIMATOPROST
     Dosage: 0.01 % SOLUTION, 1 DROP INTO THE RIGHT EYE AT BEDTIME
     Route: 047
     Dates: start: 2006
  23. COSOPT [Concomitant]
     Active Substance: DORZOLAMIDE HYDROCHLORIDE\TIMOLOL MALEATE
     Dosage: 1 GTT, 2X/DAY 2-0.5 % (1 DROP INTO RIGHT EYE)
     Route: 047
     Dates: start: 2006
  24. K-DUR [Concomitant]
     Active Substance: POTASSIUM CHLORIDE
     Dosage: 40 MEQ, DAILY
  25. DELTASONE [Concomitant]
     Active Substance: PREDNISONE
     Dosage: 5 MG, DAILY
     Route: 048
  26. SPIRIVA [Concomitant]
     Active Substance: TIOTROPIUM BROMIDE MONOHYDRATE
     Dosage: 18 UG, DAILY
     Route: 055
     Dates: start: 201507
  27. OXYGEN. [Concomitant]
     Active Substance: OXYGEN
     Dosage: 2-4 LITERS CONTINUOUS FLOW
     Dates: start: 201103
  28. DELTASONE [Concomitant]
     Active Substance: PREDNISONE
     Dosage: 20 MG, 2X/DAY
     Route: 048
  29. ZAROXOLYN [Concomitant]
     Active Substance: METOLAZONE
     Dosage: 2.5 MG, AS NEEDED
     Route: 048
     Dates: start: 20150926
  30. COLACE [Concomitant]
     Active Substance: DOCUSATE SODIUM
     Indication: CONSTIPATION
     Dosage: 100 MG, 2X/DAY (AS NEEDED)
     Route: 048
     Dates: start: 201411, end: 201506

REACTIONS (6)
  - Cardiac failure [Fatal]
  - Bladder cancer [Unknown]
  - Product use issue [Not Recovered/Not Resolved]
  - Lung disorder [Fatal]
  - Platelet count abnormal [Recovered/Resolved]
  - T-cell lymphoma [Fatal]

NARRATIVE: CASE EVENT DATE: 201404
